FAERS Safety Report 5371623-0 (Version None)
Quarter: 2007Q2

REPORT INFORMATION
  Report Type: 
  Country: None (occurrence: None)
  Receive Date: 20070627
  Receipt Date: 20070614
  Transmission Date: 20071010
  Serious: Yes (Other)
  Sender: FDA-Public Use
  Company Number: PHBS2007CN10128

PATIENT
  Age: 70 Year
  Sex: Female

DRUGS (3)
  1. ZELMAC [Suspect]
     Indication: CONSTIPATION
     Dosage: 6 MG QD OR BID
     Route: 048
     Dates: start: 20050101, end: 20070601
  2. ASPIRIN [Concomitant]
  3. BAIXINTONG [Concomitant]

REACTIONS (3)
  - BLOOD PRESSURE DECREASED [None]
  - DIARRHOEA [None]
  - DIZZINESS [None]
